FAERS Safety Report 8616183-3 (Version None)
Quarter: 2012Q3

REPORT INFORMATION
  Report Type: 
  Country: None (occurrence: None)
  Receive Date: 20120823
  Receipt Date: 20120814
  Transmission Date: 20120928
  Serious: Yes (Hospitalization)
  Sender: FDA-Public Use
  Company Number: US-ASTRAZENECA-2012SE33900

PATIENT
  Age: 66 Year
  Sex: Male

DRUGS (12)
  1. ASPIRIN [Concomitant]
  2. TRICOR [Concomitant]
  3. SIMVASTATIN [Concomitant]
  4. ADVIL [Concomitant]
     Dosage: AS NEEDED
  5. LISINOPRIL [Suspect]
     Route: 048
  6. METFORMIN HCL [Concomitant]
  7. APRESOLINE [Concomitant]
  8. INVANZ [Concomitant]
  9. CRESTOR [Suspect]
     Route: 048
  10. MULTI-VITAMIN [Concomitant]
     Dosage: DAILY
  11. NICOTINE [Concomitant]
  12. FENOFIBRATE [Concomitant]

REACTIONS (9)
  - OSTEOMYELITIS [None]
  - HYPERTENSION [None]
  - HEMIPARESIS [None]
  - IMPAIRED FASTING GLUCOSE [None]
  - HYPERLIPIDAEMIA [None]
  - OBESITY [None]
  - TYPE 2 DIABETES MELLITUS [None]
  - DIPLOPIA [None]
  - STAPHYLOCOCCAL INFECTION [None]
